FAERS Safety Report 7138011-8 (Version None)
Quarter: 2010Q4

REPORT INFORMATION
  Report Type: 
  Country: None (occurrence: None)
  Receive Date: 20101206
  Receipt Date: 20101126
  Transmission Date: 20110411
  Serious: Yes (Hospitalization)
  Sender: FDA-Public Use
  Company Number: FR-PFIZER INC-2010159286

PATIENT
  Age: 74 Year
  Sex: Female

DRUGS (2)
  1. SOLU-MEDROL [Suspect]
     Dosage: 0.5 MG/KG, 1X/DAY
     Route: 042
     Dates: start: 20100918, end: 20100919
  2. ESCITALOPRAM [Concomitant]
     Indication: DEPRESSION
     Dosage: UNK

REACTIONS (2)
  - AGGRESSION [None]
  - HALLUCINATION [None]
